FAERS Safety Report 5962937-1 (Version None)
Quarter: 2008Q4

REPORT INFORMATION
  Report Type: 
  Country: None (occurrence: None)
  Receive Date: 20081119
  Receipt Date: 20081104
  Transmission Date: 20090506
  Serious: Yes (Hospitalization)
  Sender: FDA-Public Use
  Company Number: ENTC2008-0367

PATIENT
  Age: 47 Year
  Sex: Female

DRUGS (1)
  1. STALEVO 100 [Suspect]
     Indication: PARKINSON'S DISEASE
     Dosage: 4 DF PER DAY
     Route: 048

REACTIONS (2)
  - DISEASE COMPLICATION [None]
  - PARKINSON'S DISEASE [None]
